FAERS Safety Report 8417912-4 (Version None)
Quarter: 2012Q2

REPORT INFORMATION
  Report Type: 
  Country: None (occurrence: None)
  Receive Date: 20120607
  Receipt Date: 20120604
  Transmission Date: 20120825
  Serious: No
  Sender: FDA-Public Use
  Company Number: US-PFIZER INC-2012134303

PATIENT
  Sex: Male
  Weight: 56.6 kg

DRUGS (1)
  1. GENOTROPIN [Suspect]
     Dosage: 12 MG, SIX TIMES IN A WEEK
     Route: 058

REACTIONS (1)
  - ABDOMINAL PAIN [None]
